FAERS Safety Report 9684494 (Version 2)
Quarter: 2013Q4

REPORT INFORMATION
  Report Type: Report from Study
  Country: IT (occurrence: IT)
  Receive Date: 20131112
  Receipt Date: 20131128
  Transmission Date: 20140711
  Serious: Yes (Hospitalization)
  Sender: FDA-Public Use
  Company Number: IT-MERCK-1311ITA004354

PATIENT
  Age: 60 Year
  Sex: Male
  Weight: 75 kg

DRUGS (9)
  1. BOCEPREVIR [Suspect]
     Indication: HEPATITIS C
     Dosage: 2400 MG, QD, DOSE AT ONSET OF EVENT 2400 MG, DAILY
     Route: 048
     Dates: start: 20130708
  2. BOCEPREVIR [Suspect]
     Indication: HEPATIC CIRRHOSIS
  3. PEGINTRON [Suspect]
     Indication: HEPATITIS C
     Dosage: 120 MICROGRAM, QW (DOSE AT ONSET OF EVENT 120 MCG/WEEK), PEN
     Route: 058
     Dates: start: 20130530
  4. PEGINTRON [Suspect]
     Indication: HEPATIC CIRRHOSIS
  5. RIBAVIRIN [Suspect]
     Indication: HEPATITIS C
     Dosage: 1000 MG/DAY, DOSE AT ONSET OF EVENT 600 MG PER DAY
     Route: 048
     Dates: start: 20130530
  6. RIBAVIRIN [Suspect]
     Indication: HEPATIC CIRRHOSIS
  7. BISOPROLOL [Concomitant]
     Indication: HYPERTENSION
     Dosage: 2.5 MG, QD
     Route: 048
     Dates: start: 20120207
  8. HYDROCHLOROTHIAZIDE (+) ZOFENOPRIL CALCIUM [Concomitant]
     Indication: HYPERTENSION
     Dosage: 30+12.5 MG, QD
     Route: 048
     Dates: start: 20090301
  9. INSULIN HUMAN [Concomitant]
     Indication: DIABETES MELLITUS
     Dosage: 8+10+10+20 UI, QD
     Route: 058
     Dates: start: 20130508

REACTIONS (1)
  - Anaemia [Recovering/Resolving]
